FAERS Safety Report 4346371-6 (Version None)
Quarter: 2004Q1

REPORT INFORMATION
  Report Type: 
  Country: None (occurrence: None)
  Receive Date: 20040325
  Receipt Date: 20040202
  Transmission Date: 20041129
  Serious: No
  Sender: FDA-Public Use
  Company Number: USA040258271

PATIENT
  Age: 72 Year
  Sex: Female

DRUGS (9)
  1. FORTEO [Suspect]
     Dates: start: 20031218
  2. AZMACORT [Concomitant]
  3. ALBUTEROL [Concomitant]
  4. SEREVENT [Concomitant]
  5. SYNTHROID [Concomitant]
  6. LOTREL [Concomitant]
  7. DEMADEX [Concomitant]
  8. ASPIRIN [Concomitant]
  9. MAGNESIUM [Concomitant]

REACTIONS (7)
  - BLEPHAROSPASM [None]
  - INJECTION SITE HAEMORRHAGE [None]
  - INSOMNIA [None]
  - RASH [None]
  - URTICARIA [None]
  - VISION BLURRED [None]
  - VISUAL ACUITY REDUCED [None]
